FAERS Safety Report 11444265 (Version 1)
Quarter: 2015Q3

REPORT INFORMATION
  Report Type: Spontaneous
  Country: AU (occurrence: AU)
  Receive Date: 20150901
  Receipt Date: 20150901
  Transmission Date: 20151125
  Serious: Yes (Hospitalization, Other)
  Sender: FDA-Public Use
  Company Number: PHHY2015AU101935

PATIENT

DRUGS (2)
  1. EVEROLIMUS [Suspect]
     Active Substance: EVEROLIMUS
     Indication: RENAL CELL CARCINOMA
     Dosage: 5 MG, UNK
     Route: 065
     Dates: start: 2015
  2. EVEROLIMUS [Suspect]
     Active Substance: EVEROLIMUS
     Dosage: 5 MG, UNK
     Route: 065

REACTIONS (11)
  - Dyspnoea [Recovering/Resolving]
  - Malignant neoplasm progression [Unknown]
  - Stomatitis [Unknown]
  - Hypercalcaemia [Unknown]
  - Pyrexia [Recovering/Resolving]
  - Metastases to the mediastinum [Unknown]
  - Metastases to liver [Recovering/Resolving]
  - Fatigue [Recovering/Resolving]
  - Oxygen saturation decreased [Recovering/Resolving]
  - Pulmonary function test abnormal [Unknown]
  - Metastases to lung [Unknown]
